FAERS Safety Report 22520289 (Version 1)
Quarter: 2023Q2

REPORT INFORMATION
  Report Type: Spontaneous
  Country: US (occurrence: US)
  Receive Date: 20230605
  Receipt Date: 20230605
  Transmission Date: 20230721
  Serious: Yes (Death, Other)
  Sender: FDA-Public Use
  Company Number: US-009507513-2306USA000035

PATIENT
  Sex: Male

DRUGS (8)
  1. BELSOMRA [Suspect]
     Active Substance: SUVOREXANT
     Indication: Insomnia
     Dosage: 20 MG AT BEDTIME
     Route: 048
     Dates: start: 2023, end: 2023
  2. BELSOMRA [Suspect]
     Active Substance: SUVOREXANT
     Indication: Middle insomnia
  3. DAYVIGO [Suspect]
     Active Substance: LEMBOREXANT
     Indication: Middle insomnia
     Dosage: UNK
  4. DAYVIGO [Suspect]
     Active Substance: LEMBOREXANT
     Indication: Insomnia
  5. AMBIEN [Suspect]
     Active Substance: ZOLPIDEM TARTRATE
     Indication: Insomnia
     Dosage: UNK
  6. AMBIEN [Suspect]
     Active Substance: ZOLPIDEM TARTRATE
     Indication: Middle insomnia
  7. GABAPENTIN [Suspect]
     Active Substance: GABAPENTIN
     Indication: Middle insomnia
     Dosage: UNK
     Dates: start: 2023
  8. GABAPENTIN [Suspect]
     Active Substance: GABAPENTIN
     Indication: Insomnia

REACTIONS (2)
  - Completed suicide [Fatal]
  - Drug ineffective [Unknown]

NARRATIVE: CASE EVENT DATE: 20230101
